FAERS Safety Report 8175063-0 (Version None)
Quarter: 2012Q1

REPORT INFORMATION
  Report Type: 
  Country: None (occurrence: None)
  Receive Date: 20120229
  Receipt Date: 20120222
  Transmission Date: 20120608
  Serious: Yes (Other)
  Sender: FDA-Public Use
  Company Number: PHEH2012US002096

PATIENT
  Sex: Female

DRUGS (5)
  1. GILENYA [Suspect]
     Indication: MULTIPLE SCLEROSIS
     Dosage: 0.5 MG, QD
     Route: 048
     Dates: start: 20111215, end: 20120123
  2. AMANTADINE HCL [Concomitant]
     Indication: ASTHENIA
     Dosage: 100 MG, BID
     Dates: start: 20100201
  3. BACLOFEN [Concomitant]
     Indication: MUSCLE SPASMS
     Dosage: 20 MG, TID
     Route: 048
  4. NEURONTIN [Concomitant]
     Dosage: 200 MG, TID
  5. NEURONTIN [Concomitant]
     Indication: PAIN
     Dosage: 600 MG, TID
     Route: 048

REACTIONS (5)
  - DYSPNOEA [None]
  - HYPOPNOEA [None]
  - COUGH [None]
  - CHEST DISCOMFORT [None]
  - LOSS OF CONSCIOUSNESS [None]
